FAERS Safety Report 10174494 (Version 2)
Quarter: 2014Q2

REPORT INFORMATION
  Report Type: Spontaneous
  Country: US (occurrence: None)
  Receive Date: 20140416
  Receipt Date: 20140604
  Transmission Date: 20141212
  Serious: Yes (Hospitalization, Other)
  Sender: FDA-Public Use
  Company Number: 163-POMAL-13121316

PATIENT
  Age: 65 Year
  Sex: Female
  Weight: 71.67 kg

DRUGS (13)
  1. POMALYST [Suspect]
     Indication: PLASMA CELL MYELOMA
     Dosage: 4 MG, 21 IN 21 D, PO
     Route: 048
     Dates: start: 201308
  2. LOVENOX [Concomitant]
  3. POTASSIUM CHLORIDE [Concomitant]
  4. VICODIN [Concomitant]
  5. COUMADIN (WARFARIN SODIUM) (UNKNOWN) [Concomitant]
  6. HEPARIN [Concomitant]
  7. AUGMENTIN [Concomitant]
  8. ACYCLOVIR [Concomitant]
  9. LASIX [Concomitant]
  10. TESSALON PERLE [Concomitant]
  11. CADUET [Concomitant]
  12. CALCIUM PLUS VITAMIN D [Concomitant]
  13. METOPROLOL TARTRATE [Concomitant]

REACTIONS (4)
  - Lung infection [None]
  - Interstitial lung disease [None]
  - Deep vein thrombosis [None]
  - Pulmonary embolism [None]
